FAERS Safety Report 6791127-8 (Version None)
Quarter: 2010Q2

REPORT INFORMATION
  Report Type: 
  Country: None (occurrence: None)
  Receive Date: 20100623
  Receipt Date: 20100623
  Transmission Date: 20101027
  Serious: Yes (Hospitalization)
  Sender: FDA-Public Use
  Company Number: None

PATIENT
  Age: 23 Year
  Sex: Male
  Weight: 81.6475 kg

DRUGS (1)
  1. AMBIEN [Suspect]
     Indication: INSOMNIA
     Dosage: 1 TABLET NIGHTLY EVERY NIGHT OTHER
     Route: 050
     Dates: start: 20090702, end: 20100428

REACTIONS (2)
  - DELIRIUM [None]
  - SOMNAMBULISM [None]
